FAERS Safety Report 7348914-7 (Version None)
Quarter: 2011Q1

REPORT INFORMATION
  Report Type: 
  Country: None (occurrence: None)
  Receive Date: 20110314
  Receipt Date: 20100921
  Transmission Date: 20110831
  Serious: Yes (Hospitalization, Other)
  Sender: FDA-Public Use
  Company Number: US-BAYER-201010013NA

PATIENT
  Sex: Female
  Weight: 107.94 kg

DRUGS (3)
  1. YAZ [Suspect]
     Dosage: UNK UNK, UNK
     Route: 048
     Dates: start: 20070901, end: 20071101
  2. YASMIN [Suspect]
     Dosage: UNK UNK, UNK
     Route: 048
  3. UNCODEABLE ^UNKNOWN MANUFACTURER^ [Concomitant]

REACTIONS (4)
  - CEREBROVASCULAR ACCIDENT [None]
  - TRANSVERSE SINUS THROMBOSIS [None]
  - THROMBOSIS [None]
  - HAEMORRHAGE INTRACRANIAL [None]
